FAERS Safety Report 22303103 (Version 2)
Quarter: 2023Q2

REPORT INFORMATION
  Report Type: Spontaneous
  Country: CN (occurrence: CN)
  Receive Date: 20230510
  Receipt Date: 20230607
  Transmission Date: 20230722
  Serious: Yes (Hospitalization)
  Sender: FDA-Public Use
  Company Number: CN-HETERO-HET2023CN01162

PATIENT
  Sex: Female

DRUGS (1)
  1. OSELTAMIVIR [Suspect]
     Active Substance: OSELTAMIVIR
     Indication: Influenza
     Dosage: 75 ML, B.I.D.
     Route: 048

REACTIONS (6)
  - Dizziness [Recovering/Resolving]
  - Chest discomfort [Recovering/Resolving]
  - Palpitations [Recovering/Resolving]
  - Headache [Recovering/Resolving]
  - Nausea [Recovering/Resolving]
  - Vomiting [Recovering/Resolving]
